FAERS Safety Report 16040969 (Version 1)
Quarter: 2019Q1

REPORT INFORMATION
  Report Type: Spontaneous
  Country: US (occurrence: US)
  Receive Date: 20190306
  Receipt Date: 20190306
  Transmission Date: 20190418
  Serious: Yes (Other)
  Sender: FDA-Public Use
  Company Number: US-AKORN PHARMACEUTICALS-2018AKN01302

PATIENT
  Age: 17 Year
  Sex: Male
  Weight: 74.83 kg

DRUGS (4)
  1. AMNESTEEM [Suspect]
     Active Substance: ISOTRETINOIN
     Dosage: 30 MG, 2X/DAY
     Dates: start: 20180605, end: 2018
  2. MYORISAN [Suspect]
     Active Substance: ISOTRETINOIN
     Indication: ACNE
     Dosage: 60 MG, 1X/DAY
     Dates: start: 20180709, end: 2018
  3. MYORISAN [Suspect]
     Active Substance: ISOTRETINOIN
     Indication: ACNE
     Dosage: 40 MG, 1X/DAY
     Dates: start: 20180508, end: 2018
  4. MYORISAN [Suspect]
     Active Substance: ISOTRETINOIN
     Dosage: 60 MG, 1X/DAY
     Dates: start: 20180709, end: 2018

REACTIONS (3)
  - Off label use [Recovered/Resolved]
  - Acne conglobata [Not Recovered/Not Resolved]
  - Acne fulminans [Not Recovered/Not Resolved]

NARRATIVE: CASE EVENT DATE: 201807
